FAERS Safety Report 11069059 (Version 3)
Quarter: 2015Q2

REPORT INFORMATION
  Report Type: Spontaneous
  Country: JP (occurrence: JP)
  Receive Date: 20150427
  Receipt Date: 20150527
  Transmission Date: 20150821
  Serious: Yes (Hospitalization, Disabling)
  Sender: FDA-Public Use
  Company Number: JP-B.I. PHARMACEUTICALS,INC./RIDGEFIELD-2015-BI-22171NB

PATIENT
  Age: 70 Year
  Sex: Male
  Weight: 66 kg

DRUGS (7)
  1. CIBENOL [Concomitant]
     Active Substance: CIFENLINE
     Indication: PROPHYLAXIS
     Dosage: 200 MG
     Route: 048
     Dates: start: 20150227, end: 20150301
  2. UNISIA [Concomitant]
     Active Substance: AMLODIPINE BESYLATE\CANDESARTAN CILEXETIL
     Indication: HYPERTENSION
     Dosage: 1 ANZ
     Route: 048
     Dates: start: 20140501, end: 20150301
  3. PRAZAXA [Suspect]
     Active Substance: DABIGATRAN ETEXILATE MESYLATE
     Indication: PROPHYLAXIS
     Dosage: 220 MG
     Route: 048
     Dates: start: 20150213, end: 20150301
  4. ATENOLOL. [Concomitant]
     Active Substance: ATENOLOL
     Indication: HYPERTENSION
     Dosage: 25 MG
     Route: 065
     Dates: end: 20150301
  5. DOXAZOSIN [Concomitant]
     Active Substance: DOXAZOSIN\DOXAZOSIN MESYLATE
     Indication: HYPERTENSION
     Dosage: 4 MG
     Route: 048
     Dates: start: 20140925
  6. TOWAMIN [Concomitant]
     Active Substance: ATENOLOL
     Indication: HYPERTENSION
     Dosage: 25 MG
     Route: 048
     Dates: start: 20080613
  7. CARDENALIN [Concomitant]
     Active Substance: DOXAZOSIN MESYLATE
     Indication: HYPERTENSION
     Dosage: 4 MG
     Route: 065
     Dates: end: 20150301

REACTIONS (4)
  - Loss of consciousness [Recovered/Resolved with Sequelae]
  - Fall [Recovered/Resolved with Sequelae]
  - Putamen haemorrhage [Recovered/Resolved with Sequelae]
  - Hemiplegia [Unknown]

NARRATIVE: CASE EVENT DATE: 20150301
